FAERS Safety Report 4509488-9 (Version None)
Quarter: 2004Q4

REPORT INFORMATION
  Report Type: 
  Country: None (occurrence: None)
  Receive Date: 20041119
  Receipt Date: 20041106
  Transmission Date: 20050328
  Serious: Yes (Life-Threatening, Hospitalization)
  Sender: FDA-Public Use
  Company Number: 2004090157

PATIENT
  Sex: Male
  Weight: 76.2043 kg

DRUGS (4)
  1. CELEBREX [Suspect]
     Indication: ARTHRITIS
     Dosage: ORAL
     Route: 048
  2. BEXTRA [Suspect]
     Indication: ARTHRITIS
     Dosage: ORAL
     Route: 048
  3. ROFECOXIB [Suspect]
     Indication: ARTHRITIS
     Dosage: ORAL
     Route: 048
  4. MELOXICAM (MELOXICAM) [Suspect]
     Indication: ARTHRITIS
     Dosage: ORAL
     Route: 048

REACTIONS (5)
  - CHEST PAIN [None]
  - CORONARY ARTERY SURGERY [None]
  - DYSPEPSIA [None]
  - NEPHROLITHIASIS [None]
  - THROMBOSIS [None]
